FAERS Safety Report 7500929-1 (Version None)
Quarter: 2011Q2

REPORT INFORMATION
  Report Type: 
  Country: None (occurrence: None)
  Receive Date: 20110524
  Receipt Date: 20110520
  Transmission Date: 20111010
  Serious: Yes (Death)
  Sender: FDA-Public Use
  Company Number: CH-ABBOTT-11P-151-0713521-00

PATIENT
  Sex: Male

DRUGS (3)
  1. HUMIRA [Suspect]
  2. HUMIRA [Suspect]
     Indication: SKIN DISORDER
     Dosage: ONCE
     Dates: start: 20090204
  3. HUMIRA [Suspect]
     Indication: PSORIASIS
     Dosage: ONCE, AFTER A WEEK

REACTIONS (1)
  - METABOLIC DISORDER [None]
